FAERS Safety Report 9298145 (Version 1)
Quarter: 2013Q2

REPORT INFORMATION
  Report Type: Spontaneous
  Country: AU (occurrence: AU)
  Receive Date: 20130520
  Receipt Date: 20130520
  Transmission Date: 20140414
  Serious: Yes (Other)
  Sender: FDA-Public Use
  Company Number: PHHY2013AU049157

PATIENT
  Sex: Female

DRUGS (12)
  1. ESTRADIOL [Suspect]
  2. VALSARTAN [Suspect]
  3. DEXTROPROPOXYPHENE/ PARACETAMOL [Suspect]
  4. EDRONAX [Suspect]
  5. LIPITOR [Suspect]
  6. MOVICOL [Suspect]
  7. CLONIDINE HYDROCHLORIDE [Suspect]
  8. ETORICOXIB [Suspect]
  9. NAPROXEN [Suspect]
  10. PREGABALIN [Suspect]
  11. THYROXINE SODIUM [Suspect]
  12. TARGIN [Suspect]

REACTIONS (4)
  - Influenza like illness [Unknown]
  - Lip swelling [Unknown]
  - Respiratory tract oedema [Unknown]
  - Pruritus [Unknown]
